FAERS Safety Report 25677435 (Version 1)
Quarter: 2025Q3

REPORT INFORMATION
  Report Type: Spontaneous
  Country: US (occurrence: US)
  Receive Date: 20250813
  Receipt Date: 20250813
  Transmission Date: 20251021
  Serious: No
  Sender: IMPEL NEUROPHARMA
  Company Number: US-IMPEL-2024-US-052083

PATIENT
  Age: 59 Year
  Sex: Female
  Weight: 77.11 kg

DRUGS (6)
  1. TOPROL XL [Concomitant]
     Active Substance: METOPROLOL SUCCINATE
  2. TRULANCE [Concomitant]
     Active Substance: PLECANATIDE
  3. LASIX [Concomitant]
     Active Substance: FUROSEMIDE
  4. AZELASTINE [Concomitant]
     Active Substance: AZELASTINE
  5. FLONASE [Concomitant]
     Active Substance: FLUTICASONE PROPIONATE
  6. TRUDHESA [Suspect]
     Active Substance: DIHYDROERGOTAMINE MESYLATE
     Indication: Migraine
     Route: 045
     Dates: start: 202311, end: 202405

REACTIONS (3)
  - Epistaxis [Unknown]
  - Rhinalgia [Unknown]
  - Nasal discomfort [Unknown]
